FAERS Safety Report 9185053 (Version 1)
Quarter: 2013Q1

REPORT INFORMATION
  Report Type: Spontaneous
  Country: US (occurrence: US)
  Receive Date: 20130325
  Receipt Date: 20130325
  Transmission Date: 20140127
  Serious: No
  Sender: FDA-Public Use
  Company Number: US-009507513-1303USA003580

PATIENT
  Age: 46 Year
  Sex: Male

DRUGS (4)
  1. VICTRELIS [Suspect]
     Indication: CHRONIC HEPATITIS C
     Dosage: UNK
     Route: 048
     Dates: start: 20110925, end: 20120421
  2. PLENDIL [Interacting]
     Indication: CHRONIC HEPATITIS C
     Route: 048
  3. REBETOL [Suspect]
     Indication: CHRONIC HEPATITIS C
     Dosage: DIVIDED DOSES (1 IN 1 D)
     Route: 048
     Dates: start: 20110821
  4. PEGINTERFERON ALFA-2A [Suspect]
     Indication: CHRONIC HEPATITIS C
     Dosage: 180 MICROGRAM, QW
     Route: 058
     Dates: start: 20110821

REACTIONS (14)
  - Heart rate increased [Recovered/Resolved]
  - Palpitations [Recovered/Resolved]
  - Pain in extremity [Unknown]
  - Gastric disorder [Unknown]
  - Drug interaction [Unknown]
  - Dyspnoea [Recovered/Resolved]
  - Depressed mood [Unknown]
  - Anaemia [Unknown]
  - Fatigue [Recovering/Resolving]
  - Haemoglobin decreased [Unknown]
  - Anaemia [Unknown]
  - Dysgeusia [Unknown]
  - Anaemia [Unknown]
  - Fatigue [Unknown]
